FAERS Safety Report 23123661 (Version 1)
Quarter: 2023Q4

REPORT INFORMATION
  Report Type: Spontaneous
  Country: FR (occurrence: FR)
  Receive Date: 20231030
  Receipt Date: 20231030
  Transmission Date: 20240110
  Serious: Yes (Hospitalization)
  Sender: FDA-Public Use
  Company Number: None

PATIENT
  Age: 83 Year
  Sex: Female

DRUGS (1)
  1. FLUOROURACIL [Suspect]
     Active Substance: FLUOROURACIL
     Indication: Small intestine carcinoma
     Dates: start: 20220812, end: 20220812

REACTIONS (2)
  - Wrong rate [Recovered/Resolved]
  - Electrocardiogram T wave inversion [Recovered/Resolved]

NARRATIVE: CASE EVENT DATE: 20220812
